FAERS Safety Report 9156261 (Version 1)
Quarter: 2013Q1

REPORT INFORMATION
  Report Type: Spontaneous
  Country: JP (occurrence: JP)
  Receive Date: 20130311
  Receipt Date: 20130311
  Transmission Date: 20140127
  Serious: Yes (Other)
  Sender: FDA-Public Use
  Company Number: JP-OTSUKA-004017

PATIENT
  Age: 62 Year
  Sex: Male

DRUGS (13)
  1. PLETAAL [Suspect]
     Dosage: 200 MG, DAILY DOSE
     Route: 048
     Dates: start: 19880405, end: 19880621
  2. NICORANDIL [Concomitant]
     Dosage: 15 MG, UNKNOWN
  3. DILAZEP HYDROCHLORIDE [Concomitant]
     Dosage: 150 MG, UNKNOWN
  4. GEFARNATE [Concomitant]
     Dosage: 150 MG, UNKNOWN
  5. TRIMEBUTINE MALEATE [Concomitant]
     Dosage: 300 MG, UNKNOWN
  6. NIFEDIPINE [Concomitant]
     Dosage: 15 MG, UNKNOWN
  7. GUANFACINE HYDROCHLORIDE [Concomitant]
     Dosage: 0.5 MG, UNKNOWN
  8. GLIBENCLAMIDE [Concomitant]
     Dosage: 2.5 MG, UNKNOWN
  9. ASPIRIN_DIALUMINATE [Concomitant]
     Dosage: 1 DF, UNKNOWN
     Route: 048
  10. WARFARIN POTASSIUM [Concomitant]
     Dosage: 5 MG, UNKNOWN
     Dates: end: 19880424
  11. WARFARIN POTASSIUM [Concomitant]
     Dosage: 4.5 MG, UNKNOWN
     Dates: start: 19880425, end: 19880509
  12. WARFARIN POTASSIUM [Concomitant]
     Dosage: 4 MG, UNKNOWN
     Dates: start: 19880510, end: 19880616
  13. WARFARIN POTASSIUM [Concomitant]
     Dosage: 3 MG, UNKNOWN
     Dates: start: 19880617, end: 19880621

REACTIONS (3)
  - Gastric ulcer haemorrhage [Recovering/Resolving]
  - Gastritis erosive [Unknown]
  - Thrombosis [Unknown]
